FAERS Safety Report 10227644 (Version 2)
Quarter: 2014Q2

REPORT INFORMATION
  Report Type: Spontaneous
  Country: IT (occurrence: IT)
  Receive Date: 20140610
  Receipt Date: 20140613
  Transmission Date: 20141212
  Serious: Yes (Hospitalization, Other)
  Sender: FDA-Public Use
  Company Number: IT-ASTRAZENECA-2014SE38945

PATIENT
  Age: 26306 Day
  Sex: Male
  Weight: 78 kg

DRUGS (5)
  1. PREVEX [Suspect]
     Indication: HYPERTENSION
     Route: 048
     Dates: start: 20131001, end: 20140526
  2. CARDIOASPIRIN [Suspect]
     Indication: ISCHAEMIC HEART DISEASE PROPHYLAXIS
     Route: 048
     Dates: start: 20131001, end: 20140526
  3. FELDENE FAST [Suspect]
     Indication: ANKYLOSING SPONDYLITIS
     Route: 060
     Dates: start: 20140522, end: 20140524
  4. OMEPRAZEN [Concomitant]
     Indication: GASTRIC HAEMORRHAGE
     Route: 048
     Dates: start: 20131001, end: 20140526
  5. COAPROVEL [Concomitant]
     Indication: HYPERTENSION
     Route: 048
     Dates: start: 20131001, end: 20140526

REACTIONS (3)
  - Ecchymosis [Recovered/Resolved with Sequelae]
  - Melaena [Recovered/Resolved with Sequelae]
  - Drug abuse [Recovered/Resolved]
